FAERS Safety Report 5050831-2 (Version None)
Quarter: 2006Q3

REPORT INFORMATION
  Report Type: 
  Country: None (occurrence: None)
  Receive Date: 20060710
  Receipt Date: 20060626
  Transmission Date: 20061208
  Serious: Yes (Hospitalization)
  Sender: FDA-Public Use
  Company Number: 2006081178

PATIENT
  Age: 68 Year
  Sex: Male

DRUGS (10)
  1. NEURONTIN [Suspect]
     Indication: EPILEPSY
     Dosage: 900 MG (300 MG, 3 IN 1 D), ORAL
     Route: 048
     Dates: start: 20060106, end: 20060510
  2. URAPIDIL (URAPIDIL) [Concomitant]
  3. NAFTIDROFURYL OXALATE (NAFTIDROFURYL OXALATE) [Concomitant]
  4. NICARDIPINE HYDROCHLORIDE [Concomitant]
  5. ZOPICLONE (ZOPICLONE) [Concomitant]
  6. CLONAZEPAM [Concomitant]
  7. TIAPRIDE HYDROCHLORIDE (TIAPRIDE HYDROCHLORIDE) [Concomitant]
  8. MORPHINE SULFATE [Concomitant]
  9. ACETAMINOPHEN [Concomitant]
  10. MACROGOL (MACROGOL) [Concomitant]

REACTIONS (2)
  - AGGRESSION [None]
  - AGITATION [None]
